FAERS Safety Report 26184797 (Version 1)
Quarter: 2025Q4

REPORT INFORMATION
  Report Type: Report from Study
  Country: US (occurrence: US)
  Receive Date: 20251222
  Receipt Date: 20251222
  Transmission Date: 20260118
  Serious: Yes (Other)
  Sender: ROCHE
  Company Number: US-ROCHE-3479714

PATIENT
  Sex: Male
  Weight: 106.59 kg

DRUGS (21)
  1. MYCOPHENOLATE MOFETIL [Suspect]
     Active Substance: MYCOPHENOLATE MOFETIL
     Indication: Myasthenia gravis
     Dosage: TWO 500 MG TABLETS TWICE A DAY
     Route: 048
     Dates: start: 20220601
  2. MYCOPHENOLATE MOFETIL [Suspect]
     Active Substance: MYCOPHENOLATE MOFETIL
     Dosage: 500MG TABLET
     Route: 048
  3. XARELTO [Concomitant]
     Active Substance: RIVAROXABAN
  4. CARVEDILOL [Concomitant]
     Active Substance: CARVEDILOL
  5. MESTINON [Concomitant]
     Active Substance: PYRIDOSTIGMINE BROMIDE
  6. PREDNISONE [Concomitant]
     Active Substance: PREDNISONE
  7. PREDNISONE [Concomitant]
     Active Substance: PREDNISONE
  8. PREDNISONE [Concomitant]
     Active Substance: PREDNISONE
  9. TORSEMIDE [Concomitant]
     Active Substance: TORSEMIDE
  10. TELMISARTAN [Concomitant]
     Active Substance: TELMISARTAN
  11. ASPIRIN [Concomitant]
     Active Substance: ASPIRIN
  12. CHLORTHALIDONE [Concomitant]
     Active Substance: CHLORTHALIDONE
  13. COLCHICINE [Concomitant]
     Active Substance: COLCHICINE
  14. ISOSORBIDE MONONITRATE [Concomitant]
     Active Substance: ISOSORBIDE MONONITRATE
  15. CYANOCOBALAMIN [Concomitant]
     Active Substance: CYANOCOBALAMIN
     Dosage: 1000 MCG
     Route: 048
  16. DAPAGLIFLOZIN [Concomitant]
     Active Substance: DAPAGLIFLOZIN
     Route: 048
  17. FERROUS SULFATE [Concomitant]
     Active Substance: FERROUS SULFATE
     Route: 048
  18. OMEPRAZOLE [Concomitant]
     Active Substance: OMEPRAZOLE
     Route: 048
  19. PRAVASTATIN [Concomitant]
     Active Substance: PRAVASTATIN
  20. ZOLPIDEM [Concomitant]
     Active Substance: ZOLPIDEM TARTRATE
     Route: 048
  21. PYRIDOSTIGMINE [Concomitant]
     Active Substance: PYRIDOSTIGMINE

REACTIONS (9)
  - Off label use [Unknown]
  - Vertebral foraminal stenosis [Unknown]
  - Contusion [Unknown]
  - Skin discolouration [Unknown]
  - Hypogammaglobulinaemia [Unknown]
  - Beta globulin decreased [Unknown]
  - Blood immunoglobulin G decreased [Unknown]
  - Incorrect product dosage form administered [Unknown]
  - Crohn^s disease [Unknown]
